FAERS Safety Report 4498775-9 (Version None)
Quarter: 2004Q4

REPORT INFORMATION
  Report Type: 
  Country: None (occurrence: None)
  Receive Date: 20041110
  Receipt Date: 20041110
  Transmission Date: 20050328
  Serious: Yes (Other)
  Sender: FDA-Public Use
  Company Number: None

PATIENT
  Age: 44 Year
  Sex: Male
  Weight: 99.7913 kg

DRUGS (1)
  1. COLD EEZE  QUIGLEY CORP [Suspect]

REACTIONS (2)
  - ANOSMIA [None]
  - DYSGEUSIA [None]
